FAERS Safety Report 10253319 (Version 1)
Quarter: 2014Q2

REPORT INFORMATION
  Report Type: Spontaneous
  Country: US (occurrence: None)
  Receive Date: 20140619
  Receipt Date: 20140619
  Transmission Date: 20141212
  Serious: Yes (Other)
  Sender: FDA-Public Use
  Company Number: None

PATIENT
  Age: 86 Year
  Sex: Female
  Weight: 52.16 kg

DRUGS (8)
  1. METHOTREXATE [Suspect]
     Indication: RHEUMATOID ARTHRITIS
     Dosage: 78, 6 - ONCE A WEEK, MOUTH SINCE 10 YEARS.
     Route: 048
     Dates: end: 201403
  2. FOLIC ACID [Concomitant]
  3. HYDROXCYCHLOROQUINE [Concomitant]
  4. SULFASALZINE [Concomitant]
  5. FISH OIL [Concomitant]
  6. MULTI VIT [Concomitant]
  7. VIT D [Concomitant]
  8. ANTIOXIDANT VIT + MINERAL [Concomitant]

REACTIONS (7)
  - Skin discolouration [None]
  - Skin mass [None]
  - Dry skin [None]
  - Skin disorder [None]
  - Feeling abnormal [None]
  - Pain [None]
  - Skin exfoliation [None]
